FAERS Safety Report 6685289-0 (Version None)
Quarter: 2010Q2

REPORT INFORMATION
  Report Type: 
  Country: None (occurrence: None)
  Receive Date: 20100416
  Receipt Date: 20100413
  Transmission Date: 20101027
  Serious: Yes (Hospitalization)
  Sender: FDA-Public Use
  Company Number: AT-MERCK-1004AUT00006

PATIENT
  Age: 72 Year
  Sex: Female
  Weight: 75 kg

DRUGS (10)
  1. INVANZ [Suspect]
     Route: 041
     Dates: start: 20090903, end: 20090906
  2. MEPHENYTOIN [Suspect]
     Indication: PROPHYLAXIS
     Route: 048
     Dates: start: 20090615, end: 20090913
  3. CALCIUM CARBONATE AND CHOLECALCIFEROL [Concomitant]
     Route: 048
  4. LEVETIRACETAM [Concomitant]
     Route: 048
     Dates: start: 20090914
  5. ENOXAPARIN SODIUM [Concomitant]
     Route: 058
  6. PANTOPRAZOLE SODIUM [Concomitant]
     Route: 048
  7. DIAZEPAM [Concomitant]
     Route: 054
  8. TEMOZOLOMIDE [Concomitant]
     Route: 041
     Dates: start: 20090708, end: 20090712
  9. TEMOZOLOMIDE [Concomitant]
     Route: 041
     Dates: start: 20090713, end: 20090727
  10. TEMOZOLOMIDE [Concomitant]
     Route: 041
     Dates: start: 20090803, end: 20090824

REACTIONS (1)
  - DRUG ERUPTION [None]
